FAERS Safety Report 5927728-6 (Version None)
Quarter: 2008Q4

REPORT INFORMATION
  Report Type: 
  Country: None (occurrence: None)
  Receive Date: 20081020
  Receipt Date: 20081007
  Transmission Date: 20090506
  Serious: Yes (Hospitalization)
  Sender: FDA-Public Use
  Company Number: 2007BI013181

PATIENT
  Age: 60 Year
  Sex: Female
  Weight: 70.3075 kg

DRUGS (7)
  1. AVONEX [Suspect]
     Indication: MULTIPLE SCLEROSIS
     Dosage: 30 UG; IM; 30 UG; QW; IM; 30 UG; QW; IM; 30 UG; QW; IM; IM
     Route: 030
     Dates: start: 19991101, end: 20050101
  2. AVONEX [Suspect]
     Indication: MULTIPLE SCLEROSIS
     Dosage: 30 UG; IM; 30 UG; QW; IM; 30 UG; QW; IM; 30 UG; QW; IM; IM
     Route: 030
     Dates: start: 20050101, end: 20050101
  3. AVONEX [Suspect]
     Indication: MULTIPLE SCLEROSIS
     Dosage: 30 UG; IM; 30 UG; QW; IM; 30 UG; QW; IM; 30 UG; QW; IM; IM
     Route: 030
     Dates: start: 20060228, end: 20070401
  4. AVONEX [Suspect]
     Indication: MULTIPLE SCLEROSIS
     Dosage: 30 UG; IM; 30 UG; QW; IM; 30 UG; QW; IM; 30 UG; QW; IM; IM
     Route: 030
     Dates: start: 20070501
  5. AVONEX [Suspect]
     Indication: MULTIPLE SCLEROSIS
     Dosage: 30 UG; IM; 30 UG; QW; IM; 30 UG; QW; IM; 30 UG; QW; IM; IM
     Route: 030
     Dates: start: 20070702
  6. . [Concomitant]
  7. . [Concomitant]

REACTIONS (3)
  - IMMUNE SYSTEM DISORDER [None]
  - PEMPHIGOID [None]
  - PHARYNGITIS STREPTOCOCCAL [None]
